FAERS Safety Report 9552529 (Version 1)
Quarter: 2013Q3

REPORT INFORMATION
  Report Type: Spontaneous
  Country: US (occurrence: None)
  Receive Date: 20130924
  Receipt Date: 20130924
  Transmission Date: 20140515
  Serious: No
  Sender: FDA-Public Use
  Company Number: None

PATIENT
  Sex: Female
  Weight: 65.32 kg

DRUGS (2)
  1. CYMBALTA [Suspect]
     Indication: RASH
     Dosage: ONE CAPSULE QD PO
     Route: 048
     Dates: start: 20130731, end: 20130806
  2. CYMBALTA [Suspect]
     Indication: URTICARIA
     Dosage: ONE CAPSULE QD PO
     Route: 048
     Dates: start: 20130731, end: 20130806

REACTIONS (2)
  - Rash [None]
  - Urticaria [None]
